FAERS Safety Report 6178133-1 (Version None)
Quarter: 2009Q2

REPORT INFORMATION
  Report Type: 
  Country: None (occurrence: None)
  Receive Date: 20090504
  Receipt Date: 20090428
  Transmission Date: 20091009
  Serious: Yes (Life-Threatening, Hospitalization, Disabling, Other)
  Sender: FDA-Public Use
  Company Number: PHHY2009AU04222

PATIENT
  Sex: Male

DRUGS (8)
  1. CLOZARIL [Suspect]
     Indication: SCHIZOPHRENIA
     Dosage: 450 MG, UNK
     Route: 048
     Dates: start: 20010530
  2. PANTOPRAZOLE SODIUM [Concomitant]
     Dosage: 40 MG DAILY
     Route: 048
  3. VITAMIN D3 [Concomitant]
     Dosage: 1000 IU TABLETS DOSE
  4. HALOPERIDOL [Concomitant]
     Dosage: 1.5MG TDS
     Route: 048
  5. VENTOLIN [Concomitant]
     Dosage: 5 MG, QID
  6. SPIRIVA [Concomitant]
     Dosage: 1 DOSE DAILY
  7. COLOXYL WITH SENNA [Concomitant]
     Dosage: 2 DOSES BD
     Route: 048
  8. CEFTRIAXONE [Concomitant]
     Dosage: 1 G DAILY
     Route: 048

REACTIONS (22)
  - ATELECTASIS [None]
  - BLOOD ALBUMIN DECREASED [None]
  - BLOOD CREATININE INCREASED [None]
  - BLOOD IRON DECREASED [None]
  - BLOOD MAGNESIUM DECREASED [None]
  - C-REACTIVE PROTEIN INCREASED [None]
  - HAEMATOCRIT DECREASED [None]
  - HAEMOGLOBIN DECREASED [None]
  - IRON BINDING CAPACITY TOTAL DECREASED [None]
  - NEUTROPHIL COUNT INCREASED [None]
  - OXYGEN SATURATION DECREASED [None]
  - PCO2 INCREASED [None]
  - PLATELET COUNT INCREASED [None]
  - PLEURAL EFFUSION [None]
  - PNEUMONIA PNEUMOCOCCAL [None]
  - PO2 DECREASED [None]
  - SEPSIS [None]
  - SERUM FERRITIN INCREASED [None]
  - THORACIC OPERATION [None]
  - TRANSFERRIN DECREASED [None]
  - TRANSFERRIN SATURATION DECREASED [None]
  - WHITE BLOOD CELL COUNT INCREASED [None]
